FAERS Safety Report 11693895 (Version 1)
Quarter: 2015Q4

REPORT INFORMATION
  Report Type: Spontaneous
  Country: PH (occurrence: PH)
  Receive Date: 20151103
  Receipt Date: 20151103
  Transmission Date: 20160304
  Serious: Yes (Death)
  Sender: FDA-Public Use
  Company Number: PHHY2015PH142826

PATIENT
  Age: 44 Year
  Sex: Male

DRUGS (3)
  1. GLIMEPIRIDE W/METFORMIN [Concomitant]
     Active Substance: GLIMEPIRIDE\METFORMIN
     Indication: DIABETES MELLITUS
     Route: 065
  2. GLIMEPIRIDE W/METFORMIN [Concomitant]
     Active Substance: GLIMEPIRIDE\METFORMIN
     Indication: HYPERTENSION
  3. EXFORGE HCT [Suspect]
     Active Substance: AMLODIPINE BESYLATE\HYDROCHLOROTHIAZIDE\VALSARTAN
     Indication: PRODUCT USED FOR UNKNOWN INDICATION
     Route: 065

REACTIONS (2)
  - Cerebral haemorrhage [Fatal]
  - Stress [Unknown]
